FAERS Safety Report 16736830 (Version 5)
Quarter: 2020Q2

REPORT INFORMATION
  Report Type: Report from Study
  Country: CN (occurrence: CN)
  Receive Date: 20190823
  Receipt Date: 20200531
  Transmission Date: 20200713
  Serious: Yes (Other)
  Sender: FDA-Public Use
  Company Number: CN-ROCHE-2202698

PATIENT
  Age: 76 Year
  Sex: Male
  Weight: 55 kg

DRUGS (1)
  1. AVASTIN [Suspect]
     Active Substance: BEVACIZUMAB
     Indication: COLON CANCER
     Route: 041
     Dates: start: 20160804, end: 20190801

REACTIONS (11)
  - Haemorrhage [Unknown]
  - Electrolyte imbalance [Recovering/Resolving]
  - Weight decreased [Recovering/Resolving]
  - Dehydration [Recovering/Resolving]
  - Eating disorder [Recovering/Resolving]
  - Diarrhoea [Recovering/Resolving]
  - Hepatomegaly [Not Recovered/Not Resolved]
  - Enteritis [Recovering/Resolving]
  - Abdominal discomfort [Unknown]
  - Intestinal obstruction [Unknown]
  - Hernia [Unknown]

NARRATIVE: CASE EVENT DATE: 20190613
